FAERS Safety Report 20040429 (Version 1)
Quarter: 2021Q4

REPORT INFORMATION
  Report Type: Spontaneous
  Country: US (occurrence: None)
  Receive Date: 20211105
  Receipt Date: 20211105
  Transmission Date: 20220303
  Serious: Yes (Hospitalization)
  Sender: FDA-Public Use
  Company Number: None

PATIENT
  Age: 69 Year
  Sex: Male
  Weight: 63 kg

DRUGS (3)
  1. CARBAMAZEPINE [Suspect]
     Active Substance: CARBAMAZEPINE
     Indication: Trigeminal neuralgia
     Dosage: FREQUENCY : TWICE A DAY;?
     Route: 048
     Dates: start: 20210607, end: 20210804
  2. VITAMIN D [Concomitant]
     Active Substance: VITAMIN D NOS
  3. CALCIUM [Concomitant]
     Active Substance: CALCIUM

REACTIONS (4)
  - Liver injury [None]
  - Jaundice [None]
  - Pulmonary oedema [None]
  - Rash [None]

NARRATIVE: CASE EVENT DATE: 20210721
